FAERS Safety Report 9217579 (Version 1)
Quarter: 2013Q2

REPORT INFORMATION
  Report Type: Spontaneous
  Country: FR (occurrence: FR)
  Receive Date: 20130408
  Receipt Date: 20130408
  Transmission Date: 20140414
  Serious: Yes (Death)
  Sender: FDA-Public Use
  Company Number: FR-PFIZER INC-2013106352

PATIENT
  Age: 95 Year
  Sex: Male

DRUGS (3)
  1. TRIFLUCAN [Suspect]
     Dosage: UNK
  2. HYPNOVEL [Interacting]
     Dosage: 1 CC PER HOUR, THEN 2 CC BETWEEN 6 AND 11 AM
  3. MORPHINE [Suspect]
     Dosage: UNK

REACTIONS (2)
  - Respiratory arrest [Fatal]
  - Drug interaction [Fatal]
